FAERS Safety Report 8814935 (Version 1)
Quarter: 2012Q4

REPORT INFORMATION
  Report Type: 
  Country: US (occurrence: US)
  Receive Date: 20120928
  Receipt Date: 20120928
  Transmission Date: 20130627
  Serious: Yes (Death, Life-Threatening, Other)
  Sender: FDA-Public Use
  Company Number: US-B.I. PHARMACEUTICALS,INC./RIDGEFIELD-2012-EU-04635GD

PATIENT
  Age: 79 Year
  Sex: Male

DRUGS (7)
  1. DABIGATRAN ETEXILATE [Suspect]
     Indication: ATRIAL FIBRILLATION
     Dosage: 300 mg
     Route: 048
  2. DABIGATRAN ETEXILATE [Suspect]
     Indication: CORONARY ARTERY DISEASE
  3. ASPIRIN [Suspect]
     Indication: ATRIAL FIBRILLATION
     Dosage: 81 mg
  4. ASPIRIN [Suspect]
     Indication: CORONARY ARTERY DISEASE
  5. CLOPIDOGREL [Suspect]
     Indication: ATRIAL FIBRILLATION
     Dosage: 75 mg
  6. CLOPIDOGREL [Suspect]
     Indication: CORONARY ARTERY DISEASE
  7. SOTALOL [Suspect]

REACTIONS (7)
  - Bradycardia [Fatal]
  - Cardiac arrest [Fatal]
  - Pulseless electrical activity [Unknown]
  - Epistaxis [Unknown]
  - Melaena [Unknown]
  - Rectal haemorrhage [Unknown]
  - Chest pain [Unknown]
